FAERS Safety Report 5513250-8 (Version None)
Quarter: 2007Q4

REPORT INFORMATION
  Report Type: 
  Country: None (occurrence: None)
  Receive Date: 20071112
  Receipt Date: 20071102
  Transmission Date: 20080405
  Serious: Yes (Death, Other)
  Sender: FDA-Public Use
  Company Number: CA-ELI_LILLY_AND_COMPANY-CA200710004237

PATIENT
  Sex: Male

DRUGS (3)
  1. FLUOXETINE HYDROCHLORIDE [Suspect]
     Indication: DEPRESSION
  2. MERIDIA [Concomitant]
     Route: 048
     Dates: start: 20060228
  3. ASPIRIN [Concomitant]
     Indication: ARTERIOSCLEROSIS

REACTIONS (6)
  - ARRHYTHMIA [None]
  - ARTERIOSCLEROSIS CORONARY ARTERY [None]
  - DRUG INTERACTION [None]
  - HEAD INJURY [None]
  - LOSS OF CONSCIOUSNESS [None]
  - VENTRICULAR HYPERTROPHY [None]
